FAERS Safety Report 10330872 (Version 1)
Quarter: 2014Q3

REPORT INFORMATION
  Report Type: Spontaneous
  Country: US (occurrence: None)
  Receive Date: 20140721
  Receipt Date: 20140721
  Transmission Date: 20150326
  Serious: Yes (Death)
  Sender: FDA-Public Use
  Company Number: None

PATIENT
  Age: 69 Year
  Sex: Male

DRUGS (1)
  1. TACROLIMUS 0.5MG DR. REDDY^S LABORATORIES [Suspect]
     Active Substance: TACROLIMUS ANHYDROUS
     Indication: RENAL TRANSPLANT
     Route: 048
     Dates: start: 20140616, end: 20140709

REACTIONS (1)
  - Death [None]

NARRATIVE: CASE EVENT DATE: 20140709
